FAERS Safety Report 20424521 (Version 1)
Quarter: 2022Q1

REPORT INFORMATION
  Report Type: Report from Study
  Country: US (occurrence: US)
  Receive Date: 20220203
  Receipt Date: 20220203
  Transmission Date: 20220423
  Serious: Yes (Other)
  Sender: FDA-Public Use
  Company Number: US-EXELIXIS-CABO-21042709

PATIENT
  Sex: Male

DRUGS (1)
  1. CABOMETYX [Suspect]
     Active Substance: CABOZANTINIB S-MALATE
     Indication: Renal cancer
     Dosage: 60 MG, QD

REACTIONS (7)
  - Blood pressure increased [Recovering/Resolving]
  - Nasal injury [Unknown]
  - Feeding disorder [Unknown]
  - Gait disturbance [Unknown]
  - Oral pain [Unknown]
  - Stomatitis [Unknown]
  - Pain in extremity [Unknown]
